FAERS Safety Report 25902214 (Version 2)
Quarter: 2025Q4

REPORT INFORMATION
  Report Type: Report from Study
  Country: QA (occurrence: QA)
  Receive Date: 20251009
  Receipt Date: 20251014
  Transmission Date: 20260118
  Serious: Yes (Other)
  Sender: TAKEDA
  Company Number: QA-TAKEDA-2025TUS069440

PATIENT
  Age: 44 Year
  Sex: Male
  Weight: 81 kg

DRUGS (2)
  1. VEDOLIZUMAB [Suspect]
     Active Substance: VEDOLIZUMAB
     Indication: Crohn^s disease
     Dosage: 300 MILLIGRAM
  2. RISANKIZUMAB [Suspect]
     Active Substance: RISANKIZUMAB
     Indication: Crohn^s disease
     Dosage: 360 MILLIGRAM

REACTIONS (6)
  - Rectal ulcer [Unknown]
  - Gastrointestinal anastomotic leak [Unknown]
  - Crohn^s disease [Unknown]
  - Gastrointestinal anastomotic stenosis [Recovered/Resolved]
  - Drug effect less than expected [Unknown]
  - Arthralgia [Recovered/Resolved]
